FAERS Safety Report 5104727-8 (Version None)
Quarter: 2006Q3

REPORT INFORMATION
  Report Type: 
  Country: None (occurrence: None)
  Receive Date: 20060911
  Receipt Date: 20060911
  Transmission Date: 20061208
  Serious: Yes (Other)
  Sender: FDA-Public Use
  Company Number: None

PATIENT
  Sex: Female
  Weight: 51.2565 kg

DRUGS (1)
  1. PROMETRIUM [Suspect]
     Indication: MENSTRUATION IRREGULAR
     Dosage: 200MG   ONCE/DAY  BEDTIME    PO
     Route: 048
     Dates: start: 20060903, end: 20060906

REACTIONS (1)
  - PANCREATITIS ACUTE [None]
